FAERS Safety Report 19978822 (Version 1)
Quarter: 2021Q4

REPORT INFORMATION
  Report Type: Report from Study
  Country: US (occurrence: US)
  Receive Date: 20211020
  Receipt Date: 20211020
  Transmission Date: 20220303
  Serious: Yes (Other)
  Sender: FDA-Public Use
  Company Number: US-TAKEDA-2021TUS049057

PATIENT
  Age: 82 Year
  Sex: Male
  Weight: 104.32 kg

DRUGS (27)
  1. LANADELUMAB [Suspect]
     Active Substance: LANADELUMAB
     Indication: Hereditary angioedema
     Dosage: 300 MILLIGRAM, Q4WEEKS
     Route: 050
     Dates: start: 20190116
  2. LANADELUMAB [Suspect]
     Active Substance: LANADELUMAB
     Indication: Complement deficiency disease
     Dosage: 300 MILLIGRAM, Q4WEEKS
     Route: 058
     Dates: start: 20190117
  3. LANADELUMAB [Suspect]
     Active Substance: LANADELUMAB
     Indication: Immune system disorder
  4. FIRAZYR [Suspect]
     Active Substance: ICATIBANT ACETATE
     Indication: Immune system disorder
     Dosage: 30 MILLIGRAM, PRN
     Route: 058
     Dates: start: 20131121
  5. FIRAZYR [Suspect]
     Active Substance: ICATIBANT ACETATE
     Indication: Immune system disorder
     Dosage: 30 MILLIGRAM, PRN
     Route: 058
     Dates: start: 20131121
  6. ISOSORBIDE [Concomitant]
     Active Substance: ISOSORBIDE
  7. SINGULAIR [Concomitant]
     Active Substance: MONTELUKAST SODIUM
  8. NORCO [Concomitant]
     Active Substance: ACETAMINOPHEN\HYDROCODONE BITARTRATE
  9. LINZESS [Concomitant]
     Active Substance: LINACLOTIDE
  10. BERINERT [Concomitant]
     Active Substance: HUMAN C1-ESTERASE INHIBITOR
  11. XANAX [Concomitant]
     Active Substance: ALPRAZOLAM
  12. VITAMINS [Concomitant]
     Active Substance: VITAMINS
  13. PROAIR HFA [Concomitant]
     Active Substance: ALBUTEROL SULFATE
  14. BREO ELLIPTA [Concomitant]
     Active Substance: FLUTICASONE FUROATE\VILANTEROL TRIFENATATE
  15. VITAMIN D3 [Concomitant]
     Active Substance: CHOLECALCIFEROL
  16. COENZYME Q10 [Concomitant]
     Active Substance: DIETARY SUPPLEMENT\UBIDECARENONE
  17. PLAVIX [Concomitant]
     Active Substance: CLOPIDOGREL BISULFATE
  18. FLOMAX [Concomitant]
     Active Substance: TAMSULOSIN HYDROCHLORIDE
  19. NORVASC [Concomitant]
     Active Substance: AMLODIPINE BESYLATE
  20. NITROSTAT [Concomitant]
     Active Substance: NITROGLYCERIN
  21. FINASTERIDE [Concomitant]
     Active Substance: FINASTERIDE
  22. SPIRIVA [Concomitant]
     Active Substance: TIOTROPIUM BROMIDE MONOHYDRATE
  23. ASPIRIN [Concomitant]
     Active Substance: ASPIRIN
  24. AZELASTINE. [Concomitant]
     Active Substance: AZELASTINE HYDROCHLORIDE
  25. METOPROLOL [Concomitant]
     Active Substance: METOPROLOL
  26. ZOCOR [Concomitant]
     Active Substance: SIMVASTATIN
  27. ISOSORBIDE MONONITRATE [Concomitant]
     Active Substance: ISOSORBIDE MONONITRATE

REACTIONS (5)
  - Hereditary angioedema [Recovered/Resolved]
  - Feeling abnormal [Unknown]
  - Fall [Unknown]
  - Joint injury [Unknown]
  - Hypersensitivity [Unknown]

NARRATIVE: CASE EVENT DATE: 20210723
